FAERS Safety Report 13210714 (Version 1)
Quarter: 2017Q1

REPORT INFORMATION
  Report Type: Spontaneous
  Country: US (occurrence: US)
  Receive Date: 20170209
  Receipt Date: 20170209
  Transmission Date: 20170428
  Serious: Yes (Other)
  Sender: FDA-Public Use
  Company Number: US-ABBVIE-17P-163-1867133-00

PATIENT
  Sex: Female

DRUGS (1)
  1. LUPRON DEPOT-PED [Suspect]
     Active Substance: LEUPROLIDE ACETATE
     Indication: PRECOCIOUS PUBERTY
     Route: 058

REACTIONS (9)
  - Bone loss [Unknown]
  - Tooth injury [Unknown]
  - Bone disorder [Unknown]
  - Pain [Unknown]
  - Fibromyalgia [Unknown]
  - Blood disorder [Unknown]
  - Intervertebral disc degeneration [Unknown]
  - Tooth fracture [Unknown]
  - Arthropathy [Unknown]
